FAERS Safety Report 5225074-X (Version None)
Quarter: 2007Q1

REPORT INFORMATION
  Report Type: 
  Country: None (occurrence: None)
  Receive Date: 20070129
  Receipt Date: 20070119
  Transmission Date: 20070707
  Serious: Yes (Life-Threatening)
  Sender: FDA-Public Use
  Company Number: CHNY2007NL00597

PATIENT
  Age: 44 Year
  Sex: Female
  Weight: 58 kg

DRUGS (1)
  1. CLEMASTINE FUMARATE [Suspect]
     Indication: DERMATITIS ALLERGIC
     Dosage: 2 MG, ONCE/SINGLE, PARENTERAL
     Route: 051
     Dates: start: 20061231, end: 20061231

REACTIONS (4)
  - ANAPHYLACTIC REACTION [None]
  - BLOOD PRESSURE DECREASED [None]
  - BRADYCARDIA [None]
  - CIRCULATORY COLLAPSE [None]
